FAERS Safety Report 21026040 (Version 1)
Quarter: 2022Q2

REPORT INFORMATION
  Report Type: Spontaneous
  Country: GB (occurrence: GB)
  Receive Date: 20220630
  Receipt Date: 20220630
  Transmission Date: 20220720
  Serious: Yes (Other)
  Sender: FDA-Public Use
  Company Number: GB-CELLTRION INC.-2018GB025448

PATIENT

DRUGS (13)
  1. INFLIXIMAB [Suspect]
     Active Substance: INFLIXIMAB
     Indication: Colitis
     Dosage: 5 MG/KG
     Route: 065
  2. INFLIXIMAB [Suspect]
     Active Substance: INFLIXIMAB
     Indication: Colitis
     Dosage: 5 MG/KG, UNK, 2 DOSES
     Route: 065
  3. MYCOPHENOLATE MOFETIL [Suspect]
     Active Substance: MYCOPHENOLATE MOFETIL
     Indication: Colitis
     Dosage: 1 GRAM, TWICE DAILY (ENTERIC COATED)
     Route: 048
  4. MYCOPHENOLATE MOFETIL [Suspect]
     Active Substance: MYCOPHENOLATE MOFETIL
     Dosage: 500 MG, TWICE DAILY FOR 3 WEEKS (ENTERIC COATED)
     Route: 048
  5. MYCOPHENOLATE MOFETIL [Suspect]
     Active Substance: MYCOPHENOLATE MOFETIL
     Dosage: 500 MG EVERY 12 HOURS (ENTERIC COATED)
     Route: 048
  6. MYCOPHENOLATE MOFETIL [Suspect]
     Active Substance: MYCOPHENOLATE MOFETIL
     Dosage: 1 G, 2X/DAY
     Route: 048
  7. MYCOPHENOLATE MOFETIL [Suspect]
     Active Substance: MYCOPHENOLATE MOFETIL
     Dosage: 500 MG, 2X/DAY (REDUCED)
  8. METHYLPREDNISOLONE [Suspect]
     Active Substance: METHYLPREDNISOLONE
     Indication: Colitis
     Dosage: 2 MG/KG (UNTIL IMROVEMENT TO GRADE 1), UNK
     Route: 042
  9. PREDNISOLONE [Suspect]
     Active Substance: PREDNISOLONE
     Indication: Colitis
     Dosage: 1 MG/KG, UNK (REDUCED)
     Route: 048
  10. PREDNISOLONE [Suspect]
     Active Substance: PREDNISOLONE
     Dosage: 10 MG, 1/WEEK TO NIL, WEEKLY
     Route: 048
  11. PREDNISOLONE [Suspect]
     Active Substance: PREDNISOLONE
     Dosage: UNK (DOSE INCREASED FROM ORAL PREDNISOLONE)
     Route: 048
  12. IPILIMUMAB [Concomitant]
     Active Substance: IPILIMUMAB
     Indication: Metastatic malignant melanoma
     Dosage: 3 MG/KG (2 CYCLES)
  13. NIVOLUMAB [Concomitant]
     Active Substance: NIVOLUMAB
     Indication: Metastatic malignant melanoma
     Dosage: 1 MG/KG (2 CYCLES)

REACTIONS (2)
  - Parvovirus infection [Unknown]
  - Off label use [Unknown]
